FAERS Safety Report 24304560 (Version 1)
Quarter: 2024Q3

REPORT INFORMATION
  Report Type: Other
  Country: US (occurrence: US)
  Receive Date: 20240910
  Receipt Date: 20240910
  Transmission Date: 20241016
  Serious: Yes (Hospitalization)
  Sender: SIGMA TAU
  Company Number: US-LEADIANT GMBH-2023STPI000340

PATIENT
  Sex: Male

DRUGS (2)
  1. MATULANE [Suspect]
     Active Substance: PROCARBAZINE HYDROCHLORIDE
     Indication: Brain neoplasm malignant
     Dosage: 50 MILLIGRAMS, 3 CAPSULES (150MG TOTAL) DAILY FOR 10 DAYS THEN 2 CAPSULES DAILY FOR 4 DAYS ON DAYS 8
     Route: 048
     Dates: start: 20230307
  2. MATULANE [Suspect]
     Active Substance: PROCARBAZINE HYDROCHLORIDE
     Dosage: 50 MG, 2 CAPSULES (100MG TOTAL) DAILY FOR 4 DAYS ON DAYS 8 TO 21 OF CYCLE (6 WEEK CYCLE)
     Dates: start: 20230307

REACTIONS (4)
  - Pleural effusion [Unknown]
  - Headache [Unknown]
  - Vomiting [Unknown]
  - Nausea [Unknown]
